FAERS Safety Report 7269911-6 (Version None)
Quarter: 2011Q1

REPORT INFORMATION
  Report Type: 
  Country: None (occurrence: None)
  Receive Date: 20110202
  Receipt Date: 20110128
  Transmission Date: 20110831
  Serious: Yes (Other)
  Sender: FDA-Public Use
  Company Number: JP-ROCHE-635519

PATIENT
  Sex: Male
  Weight: 30 kg

DRUGS (3)
  1. SINGULAIR [Concomitant]
     Route: 048
  2. TAMIFLU [Suspect]
     Indication: INFLUENZA
     Route: 048
     Dates: start: 20090507, end: 20090508
  3. FLUTIDE [Concomitant]
     Dosage: DOSAGE FORM: INHALANT
     Route: 055

REACTIONS (1)
  - ABNORMAL BEHAVIOUR [None]
